FAERS Safety Report 10697154 (Version 1)
Quarter: 2015Q1

REPORT INFORMATION
  Report Type: Spontaneous
  Country: RU (occurrence: RU)
  Receive Date: 20150108
  Receipt Date: 20150108
  Transmission Date: 20150721
  Serious: Yes (Other)
  Sender: FDA-Public Use
  Company Number: RU-JNJFOC-20141220467

PATIENT
  Age: 49 Year
  Sex: Female
  Weight: 100 kg

DRUGS (1)
  1. SOVRIAD [Suspect]
     Active Substance: SIMEPREVIR
     Indication: HEPATITIS C
     Route: 048
     Dates: start: 20141020, end: 20141117

REACTIONS (4)
  - Sleep disorder [Recovered/Resolved]
  - Hepatitis C [Unknown]
  - Asthenia [Recovered/Resolved]
  - Depression [Recovered/Resolved]

NARRATIVE: CASE EVENT DATE: 2014
